FAERS Safety Report 7359470-1 (Version None)
Quarter: 2011Q1

REPORT INFORMATION
  Report Type: 
  Country: None (occurrence: None)
  Receive Date: 20110317
  Receipt Date: 20091214
  Transmission Date: 20110831
  Serious: No
  Sender: FDA-Public Use
  Company Number: US-PFIZER INC-2009310128

PATIENT
  Sex: Female
  Weight: 93.424 kg

DRUGS (5)
  1. PLAVIX [Concomitant]
     Dosage: 75 MG, UNK
  2. METFORMIN [Concomitant]
     Dosage: 500 MG, UNK
  3. AVAPRO [Concomitant]
  4. ZETIA [Concomitant]
  5. AMLODIPINE BESYLATE [Suspect]
     Indication: HYPERTENSION
     Dosage: 10 MG, 1X/DAY
     Dates: start: 20091207, end: 20091211

REACTIONS (4)
  - SOMNOLENCE [None]
  - FATIGUE [None]
  - PRURITUS GENERALISED [None]
  - ORAL PAIN [None]
